FAERS Safety Report 8184697-9 (Version None)
Quarter: 2012Q1

REPORT INFORMATION
  Report Type: 
  Country: None (occurrence: None)
  Receive Date: 20120305
  Receipt Date: 20120305
  Transmission Date: 20120608
  Serious: Yes (Other)
  Sender: FDA-Public Use
  Company Number: None

PATIENT
  Age: 4 Year
  Sex: Female
  Weight: 15.875 kg

DRUGS (2)
  1. MIRALAX [Suspect]
     Indication: FAECALOMA
     Dosage: 1/2 CAPFUL
     Route: 048
     Dates: start: 20111201, end: 20120218
  2. MIRALAX [Suspect]
     Indication: CONSTIPATION
     Dosage: 1/2 CAPFUL
     Route: 048
     Dates: start: 20111201, end: 20120218

REACTIONS (18)
  - FRUSTRATION [None]
  - SCRATCH [None]
  - SELF INJURIOUS BEHAVIOUR [None]
  - TIC [None]
  - DYSPHEMIA [None]
  - VOMITING [None]
  - CRYING [None]
  - ANGER [None]
  - SCREAMING [None]
  - INSOMNIA [None]
  - ABNORMAL BEHAVIOUR [None]
  - PERSONALITY CHANGE [None]
  - INAPPROPRIATE AFFECT [None]
  - AGGRESSION [None]
  - FEAR [None]
  - FAECAL INCONTINENCE [None]
  - SPEECH DISORDER [None]
  - DRUG EFFECT DECREASED [None]
